FAERS Safety Report 23035641 (Version 1)
Quarter: 2023Q4

REPORT INFORMATION
  Report Type: Other
  Country: CA (occurrence: CA)
  Receive Date: 20231006
  Receipt Date: 20231006
  Transmission Date: 20240109
  Serious: No
  Sender: FDA-Public Use
  Company Number: CA-TOLMAR, INC.-23CA043506

PATIENT
  Age: 70 Year
  Sex: Male

DRUGS (4)
  1. ELIGARD [Suspect]
     Active Substance: LEUPROLIDE ACETATE
     Indication: Prostate cancer
     Dosage: 45 MILLIGRAM, Q 6 MONTH
     Route: 058
     Dates: start: 20230405
  2. ELIGARD [Suspect]
     Active Substance: LEUPROLIDE ACETATE
     Dosage: 45 MILLIGRAM, Q 6 MONTH
     Route: 058
     Dates: start: 20230920
  3. ELIGARD [Suspect]
     Active Substance: LEUPROLIDE ACETATE
     Indication: Prostate cancer
     Dosage: UNK
  4. XARELTO [Suspect]
     Active Substance: RIVAROXABAN
     Indication: Product used for unknown indication
     Dosage: UNK

REACTIONS (4)
  - Injection site haemorrhage [Recovered/Resolved]
  - Insomnia [Recovered/Resolved]
  - Injection site pain [Recovered/Resolved]
  - Dizziness [Unknown]

NARRATIVE: CASE EVENT DATE: 20230920
